FAERS Safety Report 5511757-0 (Version None)
Quarter: 2007Q4

REPORT INFORMATION
  Report Type: 
  Country: None (occurrence: None)
  Receive Date: 20071109
  Receipt Date: 20071105
  Transmission Date: 20080405
  Serious: Yes (Death, Life-Threatening, Hospitalization)
  Sender: FDA-Public Use
  Company Number: ZA-PFIZER INC-2007080357

PATIENT
  Sex: Male
  Weight: 72.2 kg

DRUGS (5)
  1. MARAVIROC [Suspect]
     Indication: HIV TEST POSITIVE
     Route: 048
  2. COMBIVIR [Suspect]
     Route: 048
  3. WARFARIN SODIUM [Concomitant]
     Route: 048
  4. PARACETAMOL [Concomitant]
     Route: 048
  5. COLCHICINE [Concomitant]
     Route: 048

REACTIONS (1)
  - NASOPHARYNGEAL CANCER [None]
